FAERS Safety Report 8927122 (Version 3)
Quarter: 2012Q4

REPORT INFORMATION
  Report Type: Report from Study
  Country: US (occurrence: US)
  Receive Date: 20121127
  Receipt Date: 20121218
  Transmission Date: 20130627
  Serious: Yes (Hospitalization)
  Sender: FDA-Public Use
  Company Number: US-ROCHE-1157620

PATIENT
  Age: 54 Year
  Sex: Female
  Weight: 65.3 kg

DRUGS (8)
  1. RO-5190591 [Suspect]
     Indication: CHRONIC HEPATITIS C
     Dosage: date of last dose prior to SAE- 13/Nov/2012
     Route: 048
     Dates: start: 20120821, end: 20121113
  2. PEG-INTERFERON ALFA 2A [Suspect]
     Indication: CHRONIC HEPATITIS C
     Dosage: date of last dose prior to SAE- 13/nov/2012
     Route: 058
     Dates: start: 20120821
  3. RIBAVIRIN [Suspect]
     Indication: CHRONIC HEPATITIS C
     Dosage: date of last dose prior to SAE- 13/Nov/2012
     Route: 048
     Dates: start: 20120821, end: 20121114
  4. RIBAVIRIN [Suspect]
     Dosage: date of last dose prior to SAE- 13/Nov/2012
     Route: 048
     Dates: start: 20120821, end: 20121114
  5. RITONAVIR [Suspect]
     Indication: CHRONIC HEPATITIS C
     Dosage: date of last dose prior to SAE- 13/Nov/2012
     Route: 048
     Dates: start: 20120821, end: 20121114
  6. PRILOSEC [Concomitant]
     Route: 065
     Dates: start: 20120529
  7. ASPIRIN [Concomitant]
     Route: 065
     Dates: start: 20120529
  8. TYLENOL #3 [Concomitant]
     Dosage: 5/500 mg
     Route: 065
     Dates: start: 2007

REACTIONS (11)
  - Pancytopenia [Recovered/Resolved]
  - Asthenia [None]
  - Dizziness [None]
  - Productive cough [None]
  - Wheezing [None]
  - Epistaxis [None]
  - Myalgia [None]
  - Arthralgia [None]
  - Headache [None]
  - Hyponatraemia [None]
  - Bronchitis [None]
